FAERS Safety Report 25309899 (Version 1)
Quarter: 2025Q2

REPORT INFORMATION
  Report Type: Report from Study
  Country: CO (occurrence: CO)
  Receive Date: 20250514
  Receipt Date: 20250514
  Transmission Date: 20250716
  Serious: Yes (Death)
  Sender: ABBVIE
  Company Number: CO-ABBVIE-6280165

PATIENT
  Age: 80 Year
  Sex: Male

DRUGS (1)
  1. VENCLEXTA [Suspect]
     Active Substance: VENETOCLAX
     Indication: Acute myeloid leukaemia
     Dosage: VENCLEXTA BOTTLE 100MG
     Route: 048
     Dates: start: 20240921, end: 20250425

REACTIONS (5)
  - Death [Fatal]
  - Saliva altered [Unknown]
  - Feeling hot [Unknown]
  - Suffocation feeling [Unknown]
  - Pneumonia [Unknown]

NARRATIVE: CASE EVENT DATE: 20250426
